FAERS Safety Report 16765904 (Version 2)
Quarter: 2019Q3

REPORT INFORMATION
  Report Type: Spontaneous
  Country: US (occurrence: US)
  Receive Date: 20190903
  Receipt Date: 20190911
  Transmission Date: 20191005
  Serious: Yes (Other)
  Sender: FDA-Public Use
  Company Number: US-ADVANZ PHARMA-201908000089

PATIENT

DRUGS (4)
  1. FABRAZYME [Suspect]
     Active Substance: AGALSIDASE BETA
     Dosage: 110 UNITS, FREQUENCY Q2
     Route: 042
     Dates: start: 20170510
  2. HYDROXYCHLOROQUINE [Suspect]
     Active Substance: HYDROXYCHLOROQUINE
     Indication: AUTOIMMUNE DISORDER
     Dosage: UNK
     Dates: start: 200601, end: 201907
  3. FABRAZYME [Suspect]
     Active Substance: AGALSIDASE BETA
     Indication: FABRY^S DISEASE
     Dosage: UNK
     Route: 042
     Dates: start: 2016
  4. FABRAZYME [Suspect]
     Active Substance: AGALSIDASE BETA
     Dosage: UNK
     Dates: start: 2017

REACTIONS (2)
  - Renal impairment [Unknown]
  - Skin cancer [Unknown]

NARRATIVE: CASE EVENT DATE: 20190821
